FAERS Safety Report 22625294 (Version 1)
Quarter: 2023Q2

REPORT INFORMATION
  Report Type: Spontaneous
  Country: US (occurrence: US)
  Receive Date: 20230621
  Receipt Date: 20230621
  Transmission Date: 20230722
  Serious: No
  Sender: FDA-Public Use
  Company Number: US-PFIZER INC-PV202300106123

PATIENT
  Age: 38 Year
  Sex: Female

DRUGS (2)
  1. NURTEC ODT [Suspect]
     Active Substance: RIMEGEPANT SULFATE
     Dosage: 75 MG, DAILY (DISSOLVE ONE ORAL DISINTEGRATING TABLET IN MOUTH EVERY OTHER DAY)
     Route: 048
  2. NURTEC ODT [Suspect]
     Active Substance: RIMEGEPANT SULFATE
     Dosage: 75 MG, DAILY (THIS MED WAS QD AND SHE HAS BEEN USING IT)
     Route: 048

REACTIONS (3)
  - Migraine [Unknown]
  - Somnolence [Unknown]
  - Intentional product misuse [Unknown]
